FAERS Safety Report 7801439-4 (Version None)
Quarter: 2011Q4

REPORT INFORMATION
  Report Type: 
  Country: None (occurrence: None)
  Receive Date: 20111006
  Receipt Date: 20111006
  Transmission Date: 20120403
  Serious: Yes (Hospitalization)
  Sender: FDA-Public Use
  Company Number: None

PATIENT
  Age: 62 Year
  Sex: Female
  Weight: 86.6 kg

DRUGS (1)
  1. MORPHINE [Suspect]
     Indication: PROCEDURAL PAIN
     Dosage: 1MG/ML (50ML) PCA PCA RECENT

REACTIONS (4)
  - OVERDOSE [None]
  - HYPOTENSION [None]
  - HYPOXIA [None]
  - HYPERCAPNIA [None]
